FAERS Safety Report 22243195 (Version 1)
Quarter: 2023Q2

REPORT INFORMATION
  Report Type: Spontaneous
  Country: PS (occurrence: PS)
  Receive Date: 20230424
  Receipt Date: 20230424
  Transmission Date: 20230721
  Serious: Yes (Other)
  Sender: FDA-Public Use
  Company Number: PS-SUN PHARMACEUTICAL INDUSTRIES LTD-2023R1-384019

PATIENT
  Age: 23 Year
  Sex: Female

DRUGS (1)
  1. PREDNISONE [Suspect]
     Active Substance: PREDNISONE
     Indication: Pancreatitis acute
     Dosage: 40 MILLIGRAM
     Route: 065

REACTIONS (4)
  - Disease recurrence [Unknown]
  - Therapy cessation [Unknown]
  - Live birth [Unknown]
  - Exposure during pregnancy [Unknown]
